FAERS Safety Report 24344867 (Version 2)
Quarter: 2024Q3

REPORT INFORMATION
  Report Type: Spontaneous
  Country: US (occurrence: US)
  Receive Date: 20240920
  Receipt Date: 20240927
  Transmission Date: 20241017
  Serious: No
  Sender: PFIZER
  Company Number: US-PFIZER INC-202400259837

PATIENT
  Age: 77 Year
  Sex: Female

DRUGS (3)
  1. IBRANCE [Suspect]
     Active Substance: PALBOCICLIB
     Indication: Neoplasm malignant
     Dosage: 100 MG, CYCLIC (3 WEEKS ON THEN 1 WEEK OFF)
     Dates: start: 202001
  2. IBRANCE [Suspect]
     Active Substance: PALBOCICLIB
     Dosage: 75 MG, CYCLIC (2 WEEKS ON THEN 2 WEEKS OFF)
     Route: 048
  3. ANASTROZOLE [Concomitant]
     Active Substance: ANASTROZOLE
     Indication: Hormone therapy
     Dosage: 1 TABLET A DAY
     Route: 048

REACTIONS (2)
  - White blood cell count decreased [Unknown]
  - Off label use [Unknown]
